FAERS Safety Report 12916138 (Version 4)
Quarter: 2017Q1

REPORT INFORMATION
  Report Type: Report from Study
  Country: US (occurrence: US)
  Receive Date: 20161107
  Receipt Date: 20170309
  Transmission Date: 20170428
  Serious: No
  Sender: FDA-Public Use
  Company Number: PHEH2016US028200

PATIENT
  Sex: Female
  Weight: 83 kg

DRUGS (3)
  1. ENTRESTO [Suspect]
     Active Substance: SACUBITRIL\VALSARTAN
     Indication: PRODUCT USED FOR UNKNOWN INDICATION
     Dosage: 200 MG (97/103MG), BID
     Route: 065
     Dates: start: 201607
  2. ENTRESTO [Suspect]
     Active Substance: SACUBITRIL\VALSARTAN
     Dosage: UNK UNK, BID
     Route: 048
     Dates: start: 201608
  3. ENTRESTO [Suspect]
     Active Substance: SACUBITRIL\VALSARTAN
     Dosage: 200 MG, UNK
     Route: 048

REACTIONS (7)
  - Balance disorder [Unknown]
  - Visual impairment [Unknown]
  - Weight increased [Unknown]
  - Fatigue [Unknown]
  - Influenza [Unknown]
  - Malaise [Unknown]
  - Cardiac disorder [Unknown]
